FAERS Safety Report 9956506 (Version 1)
Quarter: 2014Q1

REPORT INFORMATION
  Report Type: Report from Study
  Country: US (occurrence: US)
  Receive Date: 20140304
  Receipt Date: 20140304
  Transmission Date: 20141002
  Serious: No
  Sender: FDA-Public Use
  Company Number: US-ABBVIE-13P-163-1100651-00

PATIENT
  Age: 58 Year
  Sex: Female

DRUGS (23)
  1. HUMIRA [Suspect]
     Indication: PSORIATIC ARTHROPATHY
     Dosage: STARTING DOSE
     Dates: start: 20130604
  2. BIOTIN [Concomitant]
     Indication: ALOPECIA
     Dosage: IN AM
  3. VITAMIN B12 [Concomitant]
     Indication: PRODUCT USED FOR UNKNOWN INDICATION
     Dosage: 500 MCG DAILY
  4. ADVAIR [Concomitant]
     Indication: ASTHMA
     Dosage: 100/50
  5. FLUTICASONE [Concomitant]
     Indication: PRODUCT USED FOR UNKNOWN INDICATION
     Dosage: 50MG  1 SPRAY EACH NOSTRIL EVERYDAY
     Route: 045
  6. SIMVASTATIN [Concomitant]
     Indication: BLOOD CHOLESTEROL
     Dosage: IN EVENING
  7. LISINOPRIL [Concomitant]
     Indication: BLOOD PRESSURE
     Dosage: 5 MG DAILY
  8. PROAIR HFA [Concomitant]
     Indication: PRODUCT USED FOR UNKNOWN INDICATION
     Dosage: EVERY 6 HOURS AS NEEDED
     Route: 055
  9. DEPLIN [Concomitant]
     Indication: DEPRESSION
     Dosage: 15 MG DAILY
  10. DEPLIN [Concomitant]
     Indication: ANXIETY
  11. MAGONATE [Concomitant]
     Indication: DEPRESSION
     Dosage: AT HOUR OF SLEEP
  12. MAGONATE [Concomitant]
     Indication: ANXIETY
  13. L?-LYSINE HCI [Concomitant]
     Indication: PRODUCT USED FOR UNKNOWN INDICATION
  14. VITAMIN D3 [Concomitant]
     Indication: PRODUCT USED FOR UNKNOWN INDICATION
  15. N-ACETYL L-TYROSINE [Concomitant]
     Indication: PRODUCT USED FOR UNKNOWN INDICATION
     Dosage: 350 MG DAILY
  16. ESCITALOPRAM [Concomitant]
     Indication: DEPRESSION
     Dosage: 20 MG DAILY
  17. ESCITALOPRAM [Concomitant]
     Indication: ANXIETY
  18. BUPROPION HCL [Concomitant]
     Indication: DEPRESSION
     Dosage: 2 TABLETS IN AM AND 1 TABLET IN PM
  19. METHOTREXATE [Concomitant]
     Indication: RHEUMATOID ARTHRITIS
     Route: 050
  20. CYCLOBENZAPRINE [Concomitant]
     Indication: MUSCLE RELAXANT THERAPY
     Dosage: 1 TAB 3 TIMES A DAY AS REQUIRED
  21. CELEBREX [Concomitant]
     Indication: PRODUCT USED FOR UNKNOWN INDICATION
     Dosage: AT HOUR OF SLEEP
  22. FOLIC ACID [Concomitant]
     Indication: PRODUCT USED FOR UNKNOWN INDICATION
  23. METFORMIN HCL [Concomitant]
     Indication: DIABETES MELLITUS

REACTIONS (1)
  - Injection site pain [Recovered/Resolved]
